FAERS Safety Report 14238552 (Version 1)
Quarter: 2017Q4

REPORT INFORMATION
  Report Type: Spontaneous
  Country: US (occurrence: US)
  Receive Date: 20171130
  Receipt Date: 20171130
  Transmission Date: 20180321
  Serious: Yes (Hospitalization, Other)
  Sender: FDA-Public Use
  Company Number: US-APOTEX-2017AP021895

PATIENT
  Age: 18 Year
  Sex: Male

DRUGS (8)
  1. FLUOXETINE ORAL SOLUTION USP [Suspect]
     Active Substance: FLUOXETINE HYDROCHLORIDE
     Indication: CATATONIA
     Dosage: 40 MG, UNK
     Route: 065
  2. VALPROIC ACID [D] [Suspect]
     Active Substance: VALPROIC ACID
     Indication: CATATONIA
     Dosage: 750 MG, UNK
     Route: 065
  3. LORAZEPAM. [Suspect]
     Active Substance: LORAZEPAM
     Indication: CATATONIA
     Dosage: 1.5 MG, UNK
     Route: 065
  4. BENZTROPINE [Suspect]
     Active Substance: BENZTROPINE
     Indication: CATATONIA
     Dosage: 3 MG, UNK
     Route: 065
  5. HALOPERIDOL. [Suspect]
     Active Substance: HALOPERIDOL
     Indication: CATATONIA
     Route: 065
  6. FLUOXETINE ORAL SOLUTION USP [Suspect]
     Active Substance: FLUOXETINE HYDROCHLORIDE
     Dosage: UNK
     Route: 065
  7. LORAZEPAM. [Suspect]
     Active Substance: LORAZEPAM
     Dosage: 10 MG, PER DAY
     Route: 065
  8. TRAZODONE HYDROCHLORIDE. [Suspect]
     Active Substance: TRAZODONE HYDROCHLORIDE
     Indication: AGGRESSION
     Route: 065

REACTIONS (3)
  - Psychomotor retardation [Unknown]
  - Drug ineffective [Unknown]
  - Condition aggravated [Unknown]
